FAERS Safety Report 13263834 (Version 4)
Quarter: 2017Q2

REPORT INFORMATION
  Report Type: Spontaneous
  Country: US (occurrence: US)
  Receive Date: 20170223
  Receipt Date: 20170515
  Transmission Date: 20170830
  Serious: Yes (Hospitalization)
  Sender: FDA-Public Use
  Company Number: US-PFIZER INC-2017075132

PATIENT
  Age: 81 Year
  Sex: Female

DRUGS (21)
  1. KEFLEX [Concomitant]
     Active Substance: CEPHALEXIN
     Indication: DENTAL CARE
     Dosage: 2000 MG, UNK (1 HOUR BEFORE ANY DENTAL OR SURGICAL PROCEDURE)[500MG TAKE 4 TAB.]
  2. TYLENOL [Concomitant]
     Active Substance: ACETAMINOPHEN
     Indication: PAIN
     Dosage: 1000 MG, AS NEEDED  (2 Q6 HRS. PRN)
  3. KEFLEX [Concomitant]
     Active Substance: CEPHALEXIN
     Indication: KNEE ARTHROPLASTY
  4. FISH OIL [Concomitant]
     Active Substance: FISH OIL
     Dosage: 1400 MG, DAILY
  5. LISINOPRIL. [Concomitant]
     Active Substance: LISINOPRIL
     Indication: FELTY^S SYNDROME
     Dosage: 2.5 MG, DAILY
     Dates: start: 20140918
  6. LISINOPRIL. [Concomitant]
     Active Substance: LISINOPRIL
     Dosage: 5 MG, 1X/DAY
  7. VITAMIN E [Concomitant]
     Active Substance: .ALPHA.-TOCOPHEROL
     Dosage: 1000 DAILY
  8. XELJANZ [Suspect]
     Active Substance: TOFACITINIB CITRATE
     Indication: FELTY^S SYNDROME
     Dosage: 5 MG, DAILY
     Dates: start: 20150721
  9. LISINOPRIL. [Concomitant]
     Active Substance: LISINOPRIL
     Dosage: 11 MG, DAILY
     Dates: start: 201612
  10. CALCIUM [Concomitant]
     Active Substance: CALCIUM
     Dosage: 1200 MG, DAILY
  11. PREDNISONE. [Concomitant]
     Active Substance: PREDNISONE
     Indication: FELTY^S SYNDROME
     Dosage: 5 MG, 1X/DAY (EARLY A.M)
  12. LIPITOR [Concomitant]
     Active Substance: ATORVASTATIN CALCIUM
     Indication: BLOOD CHOLESTEROL
     Dosage: 40 MG, 1X/DAY (EACH EVENING)
     Dates: start: 2002
  13. PLAVIX [Concomitant]
     Active Substance: CLOPIDOGREL BISULFATE
     Indication: TRANSIENT ISCHAEMIC ATTACK
     Dosage: 37.5 MG, UNK (1/2 TAB)
     Dates: start: 20141031
  14. MACUHEALTH WITH LMZ3 [Concomitant]
     Dosage: UNK UNK, DAILY
  15. HYDROXYCHLOROQUINE [Concomitant]
     Active Substance: HYDROXYCHLOROQUINE
     Indication: FELTY^S SYNDROME
     Dosage: 200 MG, 1X/DAY (AT HS)
  16. LEVOTHYROXIN [Concomitant]
     Active Substance: LEVOTHYROXINE
     Indication: THYROID MASS
     Dosage: 75 UG, DAILY
     Dates: start: 20110825
  17. FOLIC ACID. [Concomitant]
     Active Substance: FOLIC ACID
     Dosage: 400 UG, DAILY
  18. CRANBERRY. [Concomitant]
     Active Substance: CRANBERRY
     Dosage: 168 MG, AS NEEDED  (2 BID IF NEEDED)
  19. XELJANZ [Suspect]
     Active Substance: TOFACITINIB CITRATE
     Dosage: 5 MG, 2X/DAY
     Dates: start: 20160916
  20. BIOTIN [Concomitant]
     Active Substance: BIOTIN
     Dosage: 1200 UG, 2X/DAY
     Dates: start: 20140512
  21. XELJANZ XR [Suspect]
     Active Substance: TOFACITINIB CITRATE
     Indication: FELTY^S SYNDROME
     Dosage: 11 MG, DAILY [WITH FOOD]
     Dates: start: 20161206

REACTIONS (1)
  - Drug ineffective [Not Recovered/Not Resolved]
